FAERS Safety Report 11560943 (Version 1)
Quarter: 2015Q3

REPORT INFORMATION
  Report Type: Spontaneous
  Country: US (occurrence: US)
  Receive Date: 20150916
  Receipt Date: 20150916
  Transmission Date: 20151125
  Serious: No
  Sender: FDA-Public Use
  Company Number: US-ELI_LILLY_AND_COMPANY-US200810003072

PATIENT
  Age: 67 Year
  Sex: Female

DRUGS (10)
  1. CALCIUM [Concomitant]
     Active Substance: CALCIUM
  2. ADVIL [Concomitant]
     Active Substance: IBUPROFEN
     Dosage: UNK, AS NEEDED
  3. MULTIPLE VITAMINS [Concomitant]
     Active Substance: VITAMINS
  4. FORTEO [Suspect]
     Active Substance: TERIPARATIDE
     Indication: OSTEOPOROSIS
     Dosage: 20 UG, DAILY (1/D)
     Dates: start: 20081001
  5. NEXIUM [Concomitant]
     Active Substance: ESOMEPRAZOLE MAGNESIUM
  6. HYDROCHLOROTHIAZIDE. [Concomitant]
     Active Substance: HYDROCHLOROTHIAZIDE
  7. ZETIA [Concomitant]
     Active Substance: EZETIMIBE
  8. AROMASIN [Concomitant]
     Active Substance: EXEMESTANE
  9. ATENOLOL. [Concomitant]
     Active Substance: ATENOLOL
  10. ASPIRIN. [Concomitant]
     Active Substance: ASPIRIN
     Dosage: UNK, AS NEEDED

REACTIONS (5)
  - Cystitis interstitial [Not Recovered/Not Resolved]
  - Pollakiuria [Not Recovered/Not Resolved]
  - Nocturia [Not Recovered/Not Resolved]
  - Bladder pain [Not Recovered/Not Resolved]
  - Bladder irritation [Not Recovered/Not Resolved]

NARRATIVE: CASE EVENT DATE: 20081011
